FAERS Safety Report 4822315-5 (Version None)
Quarter: 2005Q4

REPORT INFORMATION
  Report Type: 
  Country: None (occurrence: None)
  Receive Date: 20051103
  Receipt Date: 20051017
  Transmission Date: 20060501
  Serious: Yes (Other)
  Sender: FDA-Public Use
  Company Number: USA0510111299

PATIENT
  Age: 79 Year
  Sex: Female

DRUGS (2)
  1. ALIMTA [Suspect]
     Indication: NON-SMALL CELL LUNG CANCER STAGE IV
     Dosage: 500 MG/M2
     Dates: start: 20051001
  2. DEXAMETHASONE [Concomitant]

REACTIONS (2)
  - RASH GENERALISED [None]
  - RASH PUSTULAR [None]
